FAERS Safety Report 15212974 (Version 1)
Quarter: 2018Q3

REPORT INFORMATION
  Report Type: Spontaneous
  Country: FR (occurrence: FR)
  Receive Date: 20180730
  Receipt Date: 20180730
  Transmission Date: 20181010
  Serious: Yes (Other)
  Sender: FDA-Public Use
  Company Number: FR-TEVA-2018-FR-932854

PATIENT
  Age: 88 Year
  Sex: Female

DRUGS (9)
  1. NOVORAPID [Concomitant]
     Active Substance: INSULIN ASPART
     Route: 065
  2. SPIRONOLACTONE. [Concomitant]
     Active Substance: SPIRONOLACTONE
     Route: 065
  3. FUROSEMIDE TEVA [Suspect]
     Active Substance: FUROSEMIDE
     Indication: CARDIAC FAILURE
     Dosage: 125 MILLIGRAM DAILY;
     Route: 048
     Dates: start: 20180606, end: 20180620
  4. PIPERACILLINE TAZOBACTAM MYLAN [Suspect]
     Active Substance: PIPERACILLIN SODIUM\TAZOBACTAM SODIUM
     Indication: BACTERAEMIA
     Dosage: 12 GRAM DAILY;
     Route: 058
     Dates: start: 20180611, end: 20180621
  5. REPAGLINIDE. [Concomitant]
     Active Substance: REPAGLINIDE
     Route: 065
  6. LANTUS [Concomitant]
     Active Substance: INSULIN GLARGINE
     Route: 065
  7. PRADAXA [Concomitant]
     Active Substance: DABIGATRAN ETEXILATE MESYLATE
     Route: 065
  8. BISOPROLOL (FUMARATE DE) [Concomitant]
     Active Substance: BISOPROLOL FUMARATE
     Route: 065
  9. ZYMAD [Concomitant]
     Active Substance: CHOLECALCIFEROL
     Route: 065

REACTIONS (2)
  - Hypokalaemia [Recovered/Resolved]
  - Electrocardiogram U wave present [Recovered/Resolved]

NARRATIVE: CASE EVENT DATE: 20180620
